FAERS Safety Report 9537386 (Version 1)
Quarter: 2013Q3

REPORT INFORMATION
  Report Type: Spontaneous
  Country: US (occurrence: None)
  Receive Date: 20130918
  Receipt Date: 20130918
  Transmission Date: 20140515
  Serious: Yes (Life-Threatening, Disabling)
  Sender: FDA-Public Use
  Company Number: None

PATIENT
  Age: 25 Year
  Sex: Male
  Weight: 128.82 kg

DRUGS (3)
  1. CYMBALTA [Suspect]
     Indication: ANXIETY
     Route: 048
     Dates: start: 20120601, end: 20130917
  2. CYMBALTA [Suspect]
     Indication: EAR PAIN
     Route: 048
     Dates: start: 20120601, end: 20130917
  3. CYMBALTA [Suspect]
     Indication: DEPRESSION
     Route: 048
     Dates: start: 20120601, end: 20130917

REACTIONS (8)
  - Drug withdrawal syndrome [None]
  - Malaise [None]
  - Impaired work ability [None]
  - Dizziness [None]
  - Nausea [None]
  - Paraesthesia [None]
  - Disturbance in attention [None]
  - Aphasia [None]
